FAERS Safety Report 7751975-4 (Version None)
Quarter: 2011Q3

REPORT INFORMATION
  Report Type: 
  Country: None (occurrence: None)
  Receive Date: 20110912
  Receipt Date: 20110901
  Transmission Date: 20111222
  Serious: Yes (Other)
  Sender: FDA-Public Use
  Company Number: 1000023452

PATIENT
  Age: 29 Year
  Sex: Female

DRUGS (6)
  1. SAVELLA [Suspect]
     Indication: FIBROMYALGIA
     Dosage: SEE IMAGE, ORAL
     Route: 048
     Dates: start: 20110601, end: 20110601
  2. SAVELLA [Suspect]
     Indication: FIBROMYALGIA
     Dosage: SEE IMAGE, ORAL
     Route: 048
     Dates: start: 20110601, end: 20110601
  3. SAVELLA [Suspect]
     Indication: FIBROMYALGIA
     Dosage: SEE IMAGE, ORAL
     Route: 048
     Dates: start: 20110601, end: 20110601
  4. NORCO (VICODIN) (VICODIN) [Concomitant]
  5. ESTRADIOL [Concomitant]
  6. SAVELLA [Suspect]
     Indication: FIBROMYALGIA
     Dosage: 100 MG (50 MG, 2 IN 1 D), ORAL
     Route: 048
     Dates: start: 20110601, end: 20110801

REACTIONS (5)
  - BLOOD PRESSURE INCREASED [None]
  - SUICIDAL IDEATION [None]
  - HOMICIDAL IDEATION [None]
  - LOSS OF CONSCIOUSNESS [None]
  - FATIGUE [None]
